FAERS Safety Report 9784712 (Version 2)
Quarter: 2014Q1

REPORT INFORMATION
  Report Type: Spontaneous
  Country: SE (occurrence: SE)
  Receive Date: 20131227
  Receipt Date: 20140224
  Transmission Date: 20141002
  Serious: Yes (Other)
  Sender: FDA-Public Use
  Company Number: SE-ASTRAZENECA-2013SE92859

PATIENT
  Age: 66 Year
  Sex: Male

DRUGS (2)
  1. PLENDIL [Suspect]
     Route: 048
  2. AMLODIPINE [Suspect]
     Route: 048

REACTIONS (2)
  - Vitreous haemorrhage [Recovered/Resolved with Sequelae]
  - Conjunctival haemorrhage [Recovered/Resolved with Sequelae]
